FAERS Safety Report 25879396 (Version 1)
Quarter: 2025Q4

REPORT INFORMATION
  Report Type: Spontaneous
  Country: CN (occurrence: CN)
  Receive Date: 20251003
  Receipt Date: 20251003
  Transmission Date: 20260117
  Serious: Yes (Life-Threatening)
  Sender: NOVARTIS
  Company Number: CN-002147023-NVSC2025CN151701

PATIENT
  Age: 51 Year
  Sex: Female
  Weight: 60 kg

DRUGS (1)
  1. SACUBITRIL\VALSARTAN [Suspect]
     Active Substance: SACUBITRIL\VALSARTAN
     Indication: Cardiac failure
     Dosage: 50 MG, QD
     Route: 048
     Dates: start: 20250821, end: 20250823

REACTIONS (3)
  - Blood pressure decreased [Recovering/Resolving]
  - Dizziness [Recovering/Resolving]
  - Shock [Recovering/Resolving]

NARRATIVE: CASE EVENT DATE: 20250823
